FAERS Safety Report 16633478 (Version 1)
Quarter: 2019Q3

REPORT INFORMATION
  Report Type: Spontaneous
  Country: US (occurrence: US)
  Receive Date: 20190725
  Receipt Date: 20190725
  Transmission Date: 20191004
  Serious: No
  Sender: FDA-Public Use
  Company Number: US-BRACCO-2019US02229

PATIENT
  Age: 64 Year
  Sex: Female

DRUGS (1)
  1. READI-CAT [Suspect]
     Active Substance: BARIUM SULFATE
     Indication: COMPUTERISED TOMOGRAM ABDOMEN
     Dosage: 2 BOTTLES
     Route: 048
     Dates: start: 20190503, end: 20190503

REACTIONS (1)
  - Constipation [Recovered/Resolved]

NARRATIVE: CASE EVENT DATE: 20190503
